FAERS Safety Report 8512251-5 (Version None)
Quarter: 2012Q3

REPORT INFORMATION
  Report Type: 
  Country: None (occurrence: None)
  Receive Date: 20120716
  Receipt Date: 20120703
  Transmission Date: 20120928
  Serious: Yes (Death)
  Sender: FDA-Public Use
  Company Number: JP-ROCHE-1057073

PATIENT
  Sex: Female
  Weight: 56 kg

DRUGS (10)
  1. NORVASC [Concomitant]
     Route: 048
     Dates: start: 20120314, end: 20120322
  2. GLYBURIDE [Concomitant]
     Indication: DIABETES MELLITUS
     Route: 048
     Dates: start: 19990101
  3. TAMIFLU [Suspect]
     Indication: INFLUENZA
     Route: 048
     Dates: start: 20120314, end: 20120318
  4. ARICEPT [Concomitant]
     Indication: DEMENTIA ALZHEIMER'S TYPE
     Route: 048
     Dates: start: 20051017
  5. NORVASC [Concomitant]
     Indication: HYPERTENSION
     Route: 048
     Dates: start: 20010901, end: 20120313
  6. LANTUS [Concomitant]
     Indication: DIABETES MELLITUS
     Route: 058
     Dates: start: 20100601
  7. LASIX [Concomitant]
     Indication: CARDIAC FAILURE
     Route: 048
     Dates: start: 20111101
  8. PRIMPERAN (JAPAN) [Concomitant]
     Route: 041
     Dates: start: 20120314
  9. PELEX [Suspect]
     Indication: PYREXIA
     Route: 048
     Dates: start: 20120313, end: 20120319
  10. ASPIRIN [Concomitant]
     Indication: TRANSIENT ISCHAEMIC ATTACK
     Route: 048
     Dates: start: 20080125

REACTIONS (5)
  - RENAL FAILURE ACUTE [None]
  - DECREASED APPETITE [None]
  - RENAL FAILURE [None]
  - CARDIAC FAILURE ACUTE [None]
  - OEDEMA [None]
